FAERS Safety Report 22111616 (Version 1)
Quarter: 2023Q1

REPORT INFORMATION
  Report Type: Spontaneous
  Country: US (occurrence: US)
  Receive Date: 20230318
  Receipt Date: 20230318
  Transmission Date: 20230417
  Serious: Yes (Life-Threatening, Hospitalization)
  Sender: FDA-Public Use
  Company Number: US-MACLEODS PHARMACEUTICALS US LTD-MAC2023040319

PATIENT
  Sex: Male
  Weight: 2.52 kg

DRUGS (4)
  1. LAMIVUDINE [Suspect]
     Active Substance: LAMIVUDINE
     Indication: HIV infection
     Dosage: UNK (REGIMEN WAS STARTED AT THE DAY OF LIFE (DOL) 2)
     Route: 065
  2. NEVIRAPINE [Suspect]
     Active Substance: NEVIRAPINE
     Indication: HIV infection
     Dosage: UNK (REGIMEN WAS STARTED AT THE DAY OF LIFE (DOL) 2)
     Route: 065
  3. ZIDOVUDINE [Suspect]
     Active Substance: ZIDOVUDINE
     Indication: HIV infection
     Dosage: UNK (REGIMEN WAS STARTED AT THE DAY OF LIFE (DOL) 2)
     Route: 065
  4. ZIDOVUDINE [Suspect]
     Active Substance: ZIDOVUDINE
     Indication: Prophylaxis against HIV infection

REACTIONS (2)
  - Failure to thrive [Unknown]
  - Drug resistance [Unknown]
